FAERS Safety Report 6957676-4 (Version None)
Quarter: 2010Q3

REPORT INFORMATION
  Report Type: 
  Country: None (occurrence: None)
  Receive Date: 20100831
  Receipt Date: 20100818
  Transmission Date: 20110219
  Serious: Yes (Other)
  Sender: FDA-Public Use
  Company Number: PHHY2010JP54526

PATIENT

DRUGS (1)
  1. ZADITEN [Suspect]
     Dosage: 1 MG CAPSULE TWICE DAILY

REACTIONS (2)
  - ANAPHYLACTIC SHOCK [None]
  - DRUG EXPOSURE VIA BREAST MILK [None]
